FAERS Safety Report 12224818 (Version 1)
Quarter: 2016Q1

REPORT INFORMATION
  Report Type: Spontaneous
  Country: GB (occurrence: GB)
  Receive Date: 20160331
  Receipt Date: 20160331
  Transmission Date: 20160526
  Serious: Yes (Other)
  Sender: FDA-Public Use
  Company Number: GB-HETERO LABS LTD-1050017

PATIENT
  Age: 43 Year
  Sex: Male

DRUGS (2)
  1. KIVEXA [Suspect]
     Active Substance: ABACAVIR SULFATE\LAMIVUDINE
     Route: 065
  2. EFAVIRENZ\ EMTRICITABINE\TENOFOVIR [Suspect]
     Active Substance: EFAVIRENZ\EMTRICITABINE\TENOFOVIR DISOPROXIL FUMARATE
     Indication: PRODUCT USED FOR UNKNOWN INDICATION
     Route: 065

REACTIONS (6)
  - Cerebrovascular accident [Unknown]
  - Fatigue [Unknown]
  - Depression [Unknown]
  - Cognitive disorder [Unknown]
  - Intentional self-injury [Unknown]
  - Hypokinesia [Unknown]
